FAERS Safety Report 7174113-8 (Version None)
Quarter: 2010Q4

REPORT INFORMATION
  Report Type: 
  Country: None (occurrence: None)
  Receive Date: 20101219
  Receipt Date: 20100318
  Transmission Date: 20110411
  Serious: No
  Sender: FDA-Public Use
  Company Number: US-AMGEN-KDL400452

PATIENT

DRUGS (9)
  1. ENBREL [Suspect]
     Indication: PRODUCT USED FOR UNKNOWN INDICATION
     Dosage: 50 MG, QWK
     Route: 058
  2. CENTRUM SILVER [Concomitant]
  3. METHOTREXATE [Concomitant]
     Dosage: 2.5 MG, UNK
  4. PREDNISONE [Concomitant]
     Dosage: 2.5 MG, UNK
  5. TOCOPHEROL CONCENTRATE CAP [Concomitant]
     Dosage: 1000 IU, UNK
  6. CALCIUM [Concomitant]
     Dosage: 500 MG, UNK
  7. CYANOCOBALAMIN [Concomitant]
     Dosage: UNK UNK, UNK
  8. ASPIRIN [Concomitant]
     Dosage: 81 MG, UNK
  9. FOLIC ACID [Concomitant]
     Dosage: 5 MG, UNK

REACTIONS (2)
  - INJECTION SITE ERYTHEMA [None]
  - INJECTION SITE PRURITUS [None]
